FAERS Safety Report 10235350 (Version 1)
Quarter: 2014Q2

REPORT INFORMATION
  Report Type: Spontaneous
  Country: US (occurrence: None)
  Receive Date: 20140612
  Receipt Date: 20140612
  Transmission Date: 20141212
  Serious: Yes (Hospitalization)
  Sender: FDA-Public Use
  Company Number: None

PATIENT
  Age: 65 Year
  Sex: Male
  Weight: 98.43 kg

DRUGS (1)
  1. CIPROFLOXACIN 500 MG [Suspect]
     Indication: BIOPSY
     Dosage: 2 PILLS ONCE DAILY TAKEN BY MOUTH
     Route: 048

REACTIONS (13)
  - Dyspnoea [None]
  - Dizziness [None]
  - Tremor [None]
  - Fatigue [None]
  - Disorientation [None]
  - Confusional state [None]
  - Amnesia [None]
  - Balance disorder [None]
  - Diplopia [None]
  - Convulsion [None]
  - Hallucination [None]
  - Agitation [None]
  - Paranoia [None]
